FAERS Safety Report 5115856-7 (Version None)
Quarter: 2006Q3

REPORT INFORMATION
  Report Type: 
  Country: None (occurrence: None)
  Receive Date: 20060926
  Receipt Date: 20060926
  Transmission Date: 20061208
  Serious: No
  Sender: FDA-Public Use
  Company Number: None

PATIENT
  Age: 55 Year
  Sex: Female
  Weight: 56.6996 kg

DRUGS (1)
  1. ZICAM           MATRIXX [Suspect]
     Indication: NASOPHARYNGITIS
     Dosage: ONE ^SQUIRT^ EACH NOSTRIL   ONE TIME   NASAL
     Route: 045
     Dates: start: 20060901, end: 20060901

REACTIONS (6)
  - AGEUSIA [None]
  - ANOSMIA [None]
  - HEADACHE [None]
  - NASAL CONGESTION [None]
  - NASAL DISCOMFORT [None]
  - NERVE INJURY [None]
